FAERS Safety Report 9831607 (Version 1)
Quarter: 2014Q1

REPORT INFORMATION
  Report Type: Spontaneous
  Country: US (occurrence: US)
  Receive Date: 20140121
  Receipt Date: 20140121
  Transmission Date: 20141002
  Serious: No
  Sender: FDA-Public Use
  Company Number: US-PFIZER INC-2014017278

PATIENT
  Age: 93 Year
  Sex: Male
  Weight: 81.63 kg

DRUGS (7)
  1. SERTRALINE HCL [Suspect]
     Indication: DEPRESSION
     Dosage: UNK, 1X/DAY
  2. SERTRALINE HCL [Suspect]
     Indication: ANXIETY
     Dosage: UNK, 1X/DAY
  3. SERTRALINE HCL [Suspect]
     Dosage: 150 MG (100MG TABLET AND ONE HALF TABLET AFTER SPLITTING THE 100MG TABLET IN HALF), UNK
  4. LISINOPRIL [Concomitant]
     Indication: BLOOD PRESSURE ABNORMAL
     Dosage: UNK (SPLITTING 10MG TABLET), 1X/DAY
  5. AMLODIPINE [Concomitant]
     Indication: BLOOD PRESSURE ABNORMAL
     Dosage: 10 MG, 1X/DAY
  6. MAXZIDE [Concomitant]
     Indication: FLUID RETENTION
     Dosage: UNK (SPLITTING 75/50MG TABLET), 1X/DAY
  7. ZOCOR [Concomitant]
     Indication: BLOOD CHOLESTEROL ABNORMAL
     Dosage: 40 MG, 1X/DAY

REACTIONS (1)
  - Drug ineffective [Unknown]
